FAERS Safety Report 6082922-1 (Version None)
Quarter: 2009Q1

REPORT INFORMATION
  Report Type: 
  Country: None (occurrence: None)
  Receive Date: 20090218
  Receipt Date: 20090209
  Transmission Date: 20090719
  Serious: Yes (Hospitalization)
  Sender: FDA-Public Use
  Company Number: DE-ABBOTT-09P-062-0502564-00

PATIENT
  Sex: Female
  Weight: 52 kg

DRUGS (6)
  1. HUMIRA [Suspect]
     Indication: RHEUMATOID ARTHRITIS
     Dosage: EVERY OTHER WEEK
     Route: 058
     Dates: end: 20081124
  2. HUMIRA [Suspect]
     Dosage: EVERY OTHER WEEK
     Route: 058
     Dates: start: 20090101
  3. METHOTREXATE [Concomitant]
     Indication: RHEUMATOID ARTHRITIS
     Dosage: OPW
     Route: 058
     Dates: end: 20081124
  4. SULFASALAZIN [Concomitant]
     Indication: RHEUMATOID ARTHRITIS
     Route: 048
  5. QUENSYL [Concomitant]
     Indication: RHEUMATOID ARTHRITIS
     Route: 048
  6. GLUCOCORTICOIDS [Concomitant]
     Indication: RHEUMATOID ARTHRITIS
     Dosage: OPD

REACTIONS (6)
  - ANAEMIA [None]
  - BLOOD CREATININE INCREASED [None]
  - DEHYDRATION [None]
  - PYELONEPHRITIS [None]
  - RENAL FAILURE ACUTE [None]
  - SALMONELLOSIS [None]
